FAERS Safety Report 14660545 (Version 1)
Quarter: 2018Q1

REPORT INFORMATION
  Report Type: Report from Study
  Country: US (occurrence: US)
  Receive Date: 20180320
  Receipt Date: 20180320
  Transmission Date: 20180509
  Serious: Yes (Other)
  Sender: FDA-Public Use
  Company Number: US-ASTELLAS-2017US033599

PATIENT
  Age: 73 Year
  Sex: Female

DRUGS (3)
  1. ERLOTINIB [Suspect]
     Active Substance: ERLOTINIB
     Indication: LUNG SQUAMOUS CELL CARCINOMA STAGE II
     Dosage: 150 MG, ONCE DAILY (1DAY IN THE MORNING ON AN EMPTY STOMACH)
     Route: 048
     Dates: start: 201704
  2. ERLOTINIB [Suspect]
     Active Substance: ERLOTINIB
     Indication: NON-SMALL CELL LUNG CANCER STAGE II
  3. IMODIUM [Concomitant]
     Active Substance: LOPERAMIDE HYDROCHLORIDE
     Indication: DIARRHOEA
     Dosage: UNK, AS NEEDED
     Route: 065
     Dates: start: 2017

REACTIONS (24)
  - Constipation [Unknown]
  - Madarosis [Unknown]
  - Depression [Unknown]
  - Fatigue [Unknown]
  - Hair growth abnormal [Unknown]
  - Eyelash changes [Not Recovered/Not Resolved]
  - Rash [Unknown]
  - Diarrhoea [Recovering/Resolving]
  - Hair texture abnormal [Not Recovered/Not Resolved]
  - Eye disorder [Unknown]
  - Ill-defined disorder [Unknown]
  - Impatience [Unknown]
  - Rhinorrhoea [Unknown]
  - Rash pruritic [Not Recovered/Not Resolved]
  - Skin disorder [Unknown]
  - Mass [Unknown]
  - Dry eye [Not Recovered/Not Resolved]
  - Eye haemorrhage [Recovered/Resolved]
  - Acne [Recovering/Resolving]
  - Dry skin [Not Recovered/Not Resolved]
  - Acne pustular [Recovering/Resolving]
  - Folliculitis [Not Recovered/Not Resolved]
  - Alopecia [Not Recovered/Not Resolved]
  - Skin exfoliation [Recovering/Resolving]

NARRATIVE: CASE EVENT DATE: 201709
